FAERS Safety Report 8063099-X (Version None)
Quarter: 2012Q1

REPORT INFORMATION
  Report Type: 
  Country: None (occurrence: None)
  Receive Date: 20120123
  Receipt Date: 20120120
  Transmission Date: 20120608
  Serious: Yes (Life-Threatening, Hospitalization)
  Sender: FDA-Public Use
  Company Number: JP-B.I. PHARMACEUTICALS,INC./RIDGEFIELD-2011-BP-26917NB

PATIENT
  Sex: Female
  Weight: 57 kg

DRUGS (8)
  1. ANPLAG [Suspect]
     Indication: ARTERIAL OCCLUSIVE DISEASE
     Dosage: 100 MG
     Route: 048
     Dates: start: 20110401, end: 20111121
  2. CALNATE [Concomitant]
     Indication: HYPERTENSION
     Dosage: 5 MG
     Route: 048
     Dates: start: 20070401
  3. PRADAXA [Suspect]
     Indication: ATRIAL FIBRILLATION
     Dosage: 220 MG
     Route: 048
     Dates: start: 20110613, end: 20111121
  4. AMISALIN [Concomitant]
     Indication: VENTRICULAR EXTRASYSTOLES
     Dosage: 250 MG
     Route: 048
     Dates: start: 20070401
  5. NITOROL R [Concomitant]
     Indication: ANGINA PECTORIS
     Dosage: 20 MG
     Route: 048
     Dates: start: 20070401
  6. CRESTOR [Concomitant]
     Indication: HYPERLIPIDAEMIA
     Dosage: 1.25 MG
     Route: 048
     Dates: start: 20070401
  7. PROTECADIN [Concomitant]
     Indication: GASTRITIS
     Dosage: 10 MG
     Route: 048
     Dates: start: 20070401
  8. ETODOLAC [Concomitant]
     Indication: SPINAL OSTEOARTHRITIS
     Dosage: 400 MG
     Route: 048
     Dates: start: 20070401, end: 20111121

REACTIONS (5)
  - ANAEMIA [None]
  - CHEST DISCOMFORT [None]
  - LOWER GASTROINTESTINAL HAEMORRHAGE [None]
  - GASTROENTERITIS [None]
  - DRUG INEFFECTIVE [None]
